FAERS Safety Report 7817133-X (Version None)
Quarter: 2011Q4

REPORT INFORMATION
  Report Type: 
  Country: None (occurrence: None)
  Receive Date: 20111017
  Receipt Date: 20111017
  Transmission Date: 20120403
  Serious: Yes (Hospitalization, Other)
  Sender: FDA-Public Use
  Company Number: None

PATIENT
  Age: 12 Year
  Sex: Male
  Weight: 46.266 kg

DRUGS (1)
  1. LORAZEPAM [Suspect]
     Indication: MYOSITIS
     Dosage: 2 MG
     Route: 048
     Dates: start: 20111005, end: 20111005

REACTIONS (6)
  - HEADACHE [None]
  - HALLUCINATION [None]
  - IRRITABILITY [None]
  - DIZZINESS [None]
  - FEELING ABNORMAL [None]
  - AMNESIA [None]
